FAERS Safety Report 23663652 (Version 1)
Quarter: 2024Q1

REPORT INFORMATION
  Report Type: Spontaneous
  Country: FR (occurrence: FR)
  Receive Date: 20240322
  Receipt Date: 20240322
  Transmission Date: 20240410
  Serious: Yes (Other)
  Sender: FDA-Public Use
  Company Number: None

PATIENT
  Age: 58 Year
  Sex: Female

DRUGS (2)
  1. TAFINLAR [Suspect]
     Active Substance: DABRAFENIB MESYLATE
     Indication: Malignant melanoma
     Dosage: 2 G?L DE 75 MG MATIN ET SOIR ; 19/07/23 : SUSPENSION ; 31/07 : 2 G?L DE 50 MG MATIN ET SOIR ; 02/08
     Route: 048
     Dates: start: 20230712, end: 20240301
  2. MEKINIST [Suspect]
     Active Substance: TRAMETINIB DIMETHYL SULFOXIDE
     Indication: Malignant melanoma
     Dosage: 2 MG PAR JOUR ; 19/07/23 : SUSPENSION ; 31/07 : 2 MG PAR JOUR ; 02/08 : SUSPENSION ; 08/08 : 3 CPS D
     Route: 048
     Dates: start: 20230712, end: 20240301

REACTIONS (10)
  - Clinomania [Unknown]
  - Depression [Not Recovered/Not Resolved]
  - Rash [Recovered/Resolved]
  - Weight decreased [Unknown]
  - Nausea [Recovered/Resolved]
  - Decreased appetite [Recovered/Resolved]
  - Fatigue [Recovered/Resolved]
  - Vomiting [Recovered/Resolved]
  - Diarrhoea [Recovered/Resolved]
  - Myalgia [Recovered/Resolved]

NARRATIVE: CASE EVENT DATE: 20230721
